FAERS Safety Report 6166053-8 (Version None)
Quarter: 2009Q2

REPORT INFORMATION
  Report Type: 
  Country: None (occurrence: None)
  Receive Date: 20090424
  Receipt Date: 20090422
  Transmission Date: 20091009
  Serious: Yes (Hospitalization)
  Sender: FDA-Public Use
  Company Number: GR-JNJFOC-20090405504

PATIENT
  Age: 48 Year
  Sex: Female

DRUGS (5)
  1. IMODIUM [Suspect]
  2. IMODIUM [Suspect]
     Indication: DIARRHOEA
  3. TRUVADA [Concomitant]
     Indication: HIV INFECTION
  4. NORVIR [Concomitant]
     Indication: HIV INFECTION
  5. REYATAZ [Concomitant]
     Indication: HIV INFECTION

REACTIONS (3)
  - LARYNGEAL OEDEMA [None]
  - RASH [None]
  - SYNCOPE [None]
